FAERS Safety Report 5002796-7 (Version None)
Quarter: 2006Q2

REPORT INFORMATION
  Report Type: 
  Country: None (occurrence: None)
  Receive Date: 20060512
  Receipt Date: 20060221
  Transmission Date: 20061013
  Serious: Yes (Life-Threatening)
  Sender: FDA-Public Use
  Company Number: NO200605001481

PATIENT
  Age: 80 Year
  Sex: Female

DRUGS (10)
  1. ZYPREXA [Suspect]
     Indication: MAJOR DEPRESSION
     Dosage: 15 MG, DAILY (1/D), ORAL
     Route: 048
     Dates: start: 20020501
  2. LEVOTHYROXINE SODIUM [Concomitant]
  3. PERSNATIN (DIPYRIDAMOLE) [Concomitant]
  4. LORAZEPAM [Concomitant]
  5. ZOPICLONE (ZOPICLONE) [Concomitant]
  6. EFEXOR (VENLAFAXINE HYDOCHLORIDE) [Concomitant]
  7. EFFEXOR [Concomitant]
  8. NORITREN (AMITRIPTYLINE HYDROCHLORIDE) [Concomitant]
  9. COZAAR [Concomitant]
  10. ALBYL-E (ACETYLSALICYLIC ACID, MAGNESIUM OXIDE) [Concomitant]

REACTIONS (4)
  - BRAIN STEM INFARCTION [None]
  - COMA [None]
  - GENERAL PHYSICAL HEALTH DETERIORATION [None]
  - SEROTONIN SYNDROME [None]
